FAERS Safety Report 15961081 (Version 3)
Quarter: 2019Q2

REPORT INFORMATION
  Report Type: Spontaneous
  Country: US (occurrence: US)
  Receive Date: 20190214
  Receipt Date: 20190513
  Transmission Date: 20190711
  Serious: No
  Sender: FDA-Public Use
  Company Number: US-PFIZER INC-2019058229

PATIENT
  Age: 54 Year
  Sex: Male
  Weight: 68.93 kg

DRUGS (1)
  1. LIPITOR [Suspect]
     Active Substance: ATORVASTATIN CALCIUM
     Indication: BLOOD CHOLESTEROL
     Dosage: UNK, 1X/DAY
     Dates: start: 20140923

REACTIONS (4)
  - Penile size reduced [Not Recovered/Not Resolved]
  - Nipple enlargement [Recovering/Resolving]
  - Testicular atrophy [Not Recovered/Not Resolved]
  - Breast swelling [Recovering/Resolving]
